FAERS Safety Report 7391697-5 (Version None)
Quarter: 2011Q2

REPORT INFORMATION
  Report Type: 
  Country: None (occurrence: None)
  Receive Date: 20110404
  Receipt Date: 20110308
  Transmission Date: 20111010
  Serious: No
  Sender: FDA-Public Use
  Company Number: US-B.I. PHARMACEUTICALS,INC./RIDGEFIELD-2011-BP-06065BP

PATIENT
  Age: 82 Year
  Sex: Female

DRUGS (8)
  1. CAPTOPRIL [Concomitant]
     Dosage: 150 MG
     Route: 048
  2. FUROSEMIDE [Concomitant]
     Indication: FLUID RETENTION
     Dosage: 80 MG
     Route: 048
  3. TOPROL-XL [Concomitant]
     Indication: ATRIAL FIBRILLATION
     Dosage: 200 MG
     Route: 048
  4. KLOR-CON [Concomitant]
     Indication: PROPHYLAXIS
     Dosage: 20 MEQ
     Route: 048
  5. SYNTHROID [Concomitant]
     Indication: HYPOTHYROIDISM
     Dosage: 100 MCG
     Route: 048
  6. PRADAXA [Suspect]
     Indication: ATRIAL FIBRILLATION
     Dosage: 300 MG
     Route: 048
     Dates: start: 20110201
  7. NUMEROUS MVI'S [Concomitant]
     Indication: PROPHYLAXIS
     Route: 048
  8. MECLIZINE [Concomitant]
     Indication: VERTIGO
     Dosage: 25 MG
     Route: 048

REACTIONS (8)
  - DYSPEPSIA [None]
  - VEIN DISCOLOURATION [None]
  - CONTUSION [None]
  - JOINT SWELLING [None]
  - VAGINAL DISCHARGE [None]
  - URTICARIA [None]
  - PRURITUS [None]
  - RASH [None]
